FAERS Safety Report 5343830-4 (Version None)
Quarter: 2007Q2

REPORT INFORMATION
  Report Type: 
  Country: None (occurrence: None)
  Receive Date: 20070604
  Receipt Date: 20070521
  Transmission Date: 20071010
  Serious: Yes (Hospitalization)
  Sender: FDA-Public Use
  Company Number: AT-AMGEN-US226831

PATIENT
  Age: 75 Year
  Sex: Female
  Weight: 63.5 kg

DRUGS (5)
  1. ENBREL [Suspect]
     Indication: POLYARTHRITIS
     Dosage: 50 MG FREQUENCY UNKNOWN
     Route: 058
     Dates: start: 20061101, end: 20070401
  2. SEDACORON [Concomitant]
     Indication: TACHYCARDIA
     Dosage: 200 MG
  3. DAFLON [Concomitant]
     Indication: VARICOSE VEIN
     Dosage: 1000 MG
  4. SINTROM [Concomitant]
     Indication: HAEMODILUTION
  5. MOVALIS [Concomitant]
     Indication: POLYARTHRITIS
     Dosage: 15 MG

REACTIONS (2)
  - PURPURA [None]
  - SKIN ULCER [None]
